FAERS Safety Report 15862973 (Version 1)
Quarter: 2019Q1

REPORT INFORMATION
  Report Type: Spontaneous
  Country: NZ (occurrence: NZ)
  Receive Date: 20190124
  Receipt Date: 20190124
  Transmission Date: 20190417
  Serious: Yes (Other)
  Sender: FDA-Public Use
  Company Number: NZ-ABBVIE-17P-118-1912994-00

PATIENT
  Sex: Female
  Weight: 75 kg

DRUGS (1)
  1. HUMIRA [Suspect]
     Active Substance: ADALIMUMAB
     Indication: ANKYLOSING SPONDYLITIS
     Route: 050
     Dates: start: 201304

REACTIONS (5)
  - Prolonged pregnancy [Unknown]
  - Face presentation [Unknown]
  - Live birth [Unknown]
  - Exposure during pregnancy [Recovered/Resolved]
  - Therapeutic response shortened [Unknown]
